FAERS Safety Report 5306913-0 (Version None)
Quarter: 2007Q2

REPORT INFORMATION
  Report Type: 
  Country: None (occurrence: None)
  Receive Date: 20070425
  Receipt Date: 20070420
  Transmission Date: 20071010
  Serious: Yes (Hospitalization, Other)
  Sender: FDA-Public Use
  Company Number: US-BRISTOL-MYERS SQUIBB COMPANY-13742119

PATIENT
  Age: 22 Year
  Sex: Female
  Weight: 58 kg

DRUGS (7)
  1. COUMADIN [Suspect]
     Indication: PULMONARY EMBOLISM
     Route: 042
     Dates: start: 20070101
  2. HEPARIN [Concomitant]
  3. LOVENOX [Concomitant]
  4. PEPCID [Concomitant]
  5. FOLIC ACID [Concomitant]
     Route: 042
  6. PHENERGAN HCL [Concomitant]
     Dosage: 50 MG ALTERNATING WITH 25 MG EVERY 3 HOURS
     Route: 048
  7. DILAUDID [Concomitant]
     Route: 042

REACTIONS (6)
  - DEHYDRATION [None]
  - DYSPNOEA [None]
  - HAEMOPTYSIS [None]
  - INTERNATIONAL NORMALISED RATIO DECREASED [None]
  - NAUSEA [None]
  - VOMITING [None]
